FAERS Safety Report 4968629-X (Version None)
Quarter: 2006Q2

REPORT INFORMATION
  Report Type: 
  Country: None (occurrence: None)
  Receive Date: 20060405
  Receipt Date: 20060322
  Transmission Date: 20061013
  Serious: Yes (Hospitalization)
  Sender: FDA-Public Use
  Company Number: 2006042140

PATIENT
  Age: 45 Year
  Sex: Male
  Weight: 49 kg

DRUGS (6)
  1. SUTENT [Suspect]
     Indication: GASTROINTESTINAL STROMAL TUMOUR
     Dosage: 50 MG (50 MG, 1 IN 1 D), ORAL
     Route: 048
     Dates: start: 20051221
  2. ENOXAPARIN SODIUM [Concomitant]
  3. DUROGESIC (FENTANYL) [Concomitant]
  4. EUTIROX (LEVOTHYROXINE) [Concomitant]
  5. PANTORC (PANTOPRAZOLE SODIUM) [Concomitant]
  6. LASIX [Concomitant]

REACTIONS (1)
  - MELAENA [None]
